FAERS Safety Report 22145027 (Version 1)
Quarter: 2023Q1

REPORT INFORMATION
  Report Type: Report from Study
  Country: CA (occurrence: CA)
  Receive Date: 20230328
  Receipt Date: 20230328
  Transmission Date: 20230417
  Serious: Yes (Other)
  Sender: FDA-Public Use
  Company Number: CA-ABBVIE-4700611

PATIENT
  Sex: Male

DRUGS (2)
  1. HUMIRA [Suspect]
     Active Substance: ADALIMUMAB
     Indication: Crohn^s disease
     Route: 058
     Dates: start: 20191017
  2. LACTASE [Suspect]
     Active Substance: LACTASE
     Indication: Product used for unknown indication
     Route: 065

REACTIONS (12)
  - Anal fistula [Unknown]
  - Rash [Unknown]
  - Subcutaneous abscess [Unknown]
  - Dyspepsia [Unknown]
  - Seborrhoea [Unknown]
  - Eye pruritus [Unknown]
  - Neuropathy peripheral [Unknown]
  - Haemorrhoids [Unknown]
  - Spinal pain [Unknown]
  - Musculoskeletal disorder [Unknown]
  - Blood glucose decreased [Unknown]
  - Joint lock [Unknown]
